FAERS Safety Report 15255022 (Version 2)
Quarter: 2018Q4

REPORT INFORMATION
  Report Type: Report from Study
  Country: IL (occurrence: IL)
  Receive Date: 20180808
  Receipt Date: 20181004
  Transmission Date: 20190204
  Serious: Yes (Hospitalization)
  Sender: FDA-Public Use
  Company Number: IL-SA-2018SA133812

PATIENT
  Age: 12 Year
  Sex: Female
  Weight: 42 kg

DRUGS (41)
  1. BLINDED INSULIN LISPRO [Suspect]
     Active Substance: INSULIN LISPRO
     Indication: TYPE 1 DIABETES MELLITUS
     Dosage: UNK UNK,QD
     Route: 058
     Dates: start: 20170924
  2. BLINDED INSULIN LISPRO [Suspect]
     Active Substance: INSULIN LISPRO
     Indication: TYPE 1 DIABETES MELLITUS
     Dosage: UNK UNK,QD
     Route: 058
     Dates: start: 20170924
  3. BLINDED INSULIN [Suspect]
     Active Substance: INSULIN NOS
     Dosage: UNK
     Dates: start: 20171105
  4. BLINDED INSULIN ASPART [Suspect]
     Active Substance: INSULIN ASPART
     Dosage: UNK
     Dates: start: 20171105
  5. BLINDED INSULIN HUMAN [Suspect]
     Active Substance: INSULIN HUMAN
     Dosage: UNK
     Dates: start: 20171105
  6. BLINDED INSULIN GLARGINE [Suspect]
     Active Substance: INSULIN GLARGINE
     Indication: TYPE 1 DIABETES MELLITUS
     Dosage: UNK UNK,QD
     Route: 058
     Dates: start: 20170924
  7. BLINDED INSULIN GLARGINE [Suspect]
     Active Substance: INSULIN GLARGINE
     Dosage: UNK
     Dates: start: 20171105
  8. BLINDED INSULIN HUMAN [Suspect]
     Active Substance: INSULIN HUMAN
     Dosage: UNK UNK, UNK
  9. BLINDED INSULIN GLARGINE [Suspect]
     Active Substance: INSULIN GLARGINE
     Indication: TYPE 1 DIABETES MELLITUS
     Dosage: UNK UNK,QD
     Route: 058
     Dates: start: 20170924
  10. BLINDED INSULIN HUMAN [Suspect]
     Active Substance: INSULIN HUMAN
     Indication: TYPE 1 DIABETES MELLITUS
     Dosage: UNK UNK,QD
     Route: 058
     Dates: start: 20170924
  11. BLINDED INSULIN [Suspect]
     Active Substance: INSULIN NOS
     Dosage: UNK
     Dates: start: 20180412
  12. BLINDED INSULIN HUMAN [Suspect]
     Active Substance: INSULIN HUMAN
     Dosage: UNK
     Dates: start: 20180412
  13. BLINDED INSULIN LISPRO [Suspect]
     Active Substance: INSULIN LISPRO
     Dosage: UNK
     Dates: start: 20180412
  14. BLINDED NO STUDY DRUG GIVEN [Suspect]
     Active Substance: INVESTIGATIONAL PRODUCT
     Dosage: UNK UNK, UNK
  15. BLINDED INSULIN ASPART [Suspect]
     Active Substance: INSULIN ASPART
     Indication: TYPE 1 DIABETES MELLITUS
     Dosage: UNK UNK,QD
     Route: 058
     Dates: start: 20170924
  16. BLINDED INSULIN GLARGINE [Suspect]
     Active Substance: INSULIN GLARGINE
     Dosage: UNK
     Dates: start: 20171105
  17. BLINDED INSULIN ASPART [Suspect]
     Active Substance: INSULIN ASPART
     Dosage: UNK
     Dates: start: 20180412
  18. BLINDED INSULIN GLARGINE [Suspect]
     Active Substance: INSULIN GLARGINE
     Dosage: UNK
     Dates: start: 20180412
  19. BLINDED INSULIN GLARGINE [Suspect]
     Active Substance: INSULIN GLARGINE
     Dosage: UNK UNK, UNK
  20. BLINDED INSULIN GLARGINE [Suspect]
     Active Substance: INSULIN GLARGINE
     Dosage: UNK UNK, UNK
  21. BLINDED INSULIN ASPART [Suspect]
     Active Substance: INSULIN ASPART
     Indication: TYPE 1 DIABETES MELLITUS
     Dosage: UNK UNK,QD
     Route: 058
     Dates: start: 20170924
  22. BLINDED NO STUDY DRUG GIVEN [Suspect]
     Active Substance: INVESTIGATIONAL PRODUCT
     Indication: TYPE 1 DIABETES MELLITUS
     Dosage: UNK UNK,QD
     Route: 058
     Dates: start: 20170924
  23. BLINDED INSULIN GLARGINE [Suspect]
     Active Substance: INSULIN GLARGINE
     Dosage: UNK
     Dates: start: 20171105
  24. BLINDED INSULIN LISPRO [Suspect]
     Active Substance: INSULIN LISPRO
     Dosage: UNK
     Dates: start: 20171105
  25. BLINDED INSULIN ASPART [Suspect]
     Active Substance: INSULIN ASPART
     Dosage: UNK
     Dates: start: 20180412
  26. BLINDED INSULIN GLARGINE [Suspect]
     Active Substance: INSULIN GLARGINE
     Indication: TYPE 1 DIABETES MELLITUS
     Dosage: UNK UNK,QD
     Route: 058
     Dates: start: 20170924
  27. BLINDED INSULIN LISPRO [Suspect]
     Active Substance: INSULIN LISPRO
     Dosage: UNK
     Dates: start: 20171105
  28. BLINDED INSULIN GLARGINE [Suspect]
     Active Substance: INSULIN GLARGINE
     Dosage: UNK
     Dates: start: 20180412
  29. BLINDED INSULIN LISPRO [Suspect]
     Active Substance: INSULIN LISPRO
     Dosage: UNK
     Dates: start: 20180412
  30. BLINDED INSULIN [Suspect]
     Active Substance: INSULIN NOS
     Indication: TYPE 1 DIABETES MELLITUS
     Dosage: UNK UNK,QD
     Route: 058
     Dates: start: 20170924
  31. BLINDED NO STUDY DRUG GIVEN [Suspect]
     Active Substance: INVESTIGATIONAL PRODUCT
     Dosage: UNK
     Dates: start: 20180412
  32. BLINDED INSULIN [Suspect]
     Active Substance: INSULIN NOS
     Dosage: UNK UNK, UNK
  33. BLINDED INSULIN GLARGINE [Suspect]
     Active Substance: INSULIN GLARGINE
     Dosage: UNK UNK, UNK
  34. BLINDED INSULIN LISPRO [Suspect]
     Active Substance: INSULIN LISPRO
     Dosage: UNK UNK, UNK
  35. BLINDED INSULIN ASPART [Suspect]
     Active Substance: INSULIN ASPART
     Dosage: UNK
     Dates: start: 20171105
  36. BLINDED NO STUDY DRUG GIVEN [Suspect]
     Active Substance: INVESTIGATIONAL PRODUCT
     Dosage: UNK
     Dates: start: 20171105
  37. BLINDED INSULIN GLARGINE [Suspect]
     Active Substance: INSULIN GLARGINE
     Dosage: UNK
     Dates: start: 20180412
  38. BLINDED INSULIN ASPART [Suspect]
     Active Substance: INSULIN ASPART
     Dosage: UNK UNK, UNK
  39. BLINDED INSULIN ASPART [Suspect]
     Active Substance: INSULIN ASPART
     Dosage: UNK UNK, UNK
  40. BLINDED INSULIN LISPRO [Suspect]
     Active Substance: INSULIN LISPRO
     Dosage: UNK UNK, UNK
  41. NOVORAPID [Suspect]
     Active Substance: INSULIN ASPART
     Indication: TYPE 1 DIABETES MELLITUS
     Dosage: UNK UNK, UNK
     Route: 065

REACTIONS (1)
  - Hypoglycaemic seizure [Recovered/Resolved]

NARRATIVE: CASE EVENT DATE: 20180506
